FAERS Safety Report 14777677 (Version 1)
Quarter: 2018Q2

REPORT INFORMATION
  Report Type: Spontaneous
  Country: US (occurrence: US)
  Receive Date: 20180412
  Receipt Date: 20180412
  Transmission Date: 20180711
  Serious: No
  Sender: FDA-Public Use
  Company Number: None

PATIENT
  Age: 36 Year
  Sex: Female
  Weight: 59.4 kg

DRUGS (1)
  1. FLUTICASONE PROPIONATE NASAL SPRAY [Suspect]
     Active Substance: FLUTICASONE PROPIONATE
     Indication: MULTIPLE ALLERGIES
     Dosage: ?          QUANTITY:1 SPRAY(S);OTHER ROUTE:NOSE SPRAY?
     Dates: start: 20180315, end: 20180405

REACTIONS (3)
  - Chest discomfort [None]
  - Nightmare [None]
  - Chest pain [None]

NARRATIVE: CASE EVENT DATE: 20180405
